FAERS Safety Report 6690871-0 (Version None)
Quarter: 2010Q2

REPORT INFORMATION
  Report Type: 
  Country: None (occurrence: None)
  Receive Date: 20100421
  Receipt Date: 20100407
  Transmission Date: 20101027
  Serious: Yes (Hospitalization)
  Sender: FDA-Public Use
  Company Number: DE-MYLANLABS-2010S1006091

PATIENT
  Age: 66 Year
  Sex: Male
  Weight: 86 kg

DRUGS (9)
  1. BISOPROLOL [Suspect]
     Indication: HYPERTENSION
     Route: 048
     Dates: start: 20091101
  2. EXFORGE /01634301/ [Suspect]
     Indication: HYPERTENSION
     Dosage: AMLODIPINE (5 MG) UND VALSARTAN (160 MG)
     Route: 048
     Dates: start: 20091101, end: 20100121
  3. TORSEMIDE [Suspect]
     Indication: HYPERTENSION
     Route: 048
     Dates: start: 20091101, end: 20100121
  4. XIPAMIDE [Suspect]
     Indication: RENAL IMPAIRMENT
     Route: 048
     Dates: start: 20091101, end: 20100121
  5. IMBUN /00109201/ [Suspect]
     Indication: PAIN
     Route: 048
     Dates: start: 20100107, end: 20100121
  6. ALLOPURINOL [Concomitant]
     Indication: HYPERURICAEMIA
     Route: 048
     Dates: start: 20091101, end: 20100121
  7. SIMVASTATIN [Concomitant]
     Indication: METABOLIC SYNDROME
     Route: 048
     Dates: start: 20091101
  8. DEKRISTOL [Concomitant]
     Indication: OSTEOPOROSIS PROPHYLAXIS
     Route: 048
  9. SEVREDOL [Concomitant]
     Indication: PAIN
     Route: 048
     Dates: start: 20100101

REACTIONS (1)
  - RENAL FAILURE ACUTE [None]
